FAERS Safety Report 4897659-1 (Version None)
Quarter: 2006Q1

REPORT INFORMATION
  Report Type: 
  Country: None (occurrence: None)
  Receive Date: 20060130
  Receipt Date: 20060130
  Transmission Date: 20060701
  Serious: No
  Sender: FDA-Public Use
  Company Number: None

PATIENT
  Age: 56 Year
  Sex: Female
  Weight: 108.9 kg

DRUGS (3)
  1. POTASSIUM CHLORIDE [Suspect]
     Indication: CARDIAC VALVE DISEASE
     Dosage: 50 MEQ/L CARDIOPLEGIC CANNULA
     Route: 050
     Dates: start: 20060126
  2. POTASSIUM CHLORIDE [Suspect]
     Indication: CORONARY ARTERY SURGERY
     Dosage: 50 MEQ/L CARDIOPLEGIC CANNULA
     Route: 050
     Dates: start: 20060126
  3. POTASSIUM CHLORIDE [Suspect]
     Indication: SURGERY
     Dosage: 50 MEQ/L CARDIOPLEGIC CANNULA
     Route: 050
     Dates: start: 20060126

REACTIONS (2)
  - DRUG INEFFECTIVE [None]
  - PROCEDURAL COMPLICATION [None]
